FAERS Safety Report 20608106 (Version 2)
Quarter: 2022Q1

REPORT INFORMATION
  Report Type: Spontaneous
  Country: CN (occurrence: CN)
  Receive Date: 20220317
  Receipt Date: 20220326
  Transmission Date: 20220423
  Serious: Yes (Hospitalization, Other)
  Sender: FDA-Public Use
  Company Number: CN-SA-2022SA083084

PATIENT
  Age: 50 Year
  Sex: Female
  Weight: 60 kg

DRUGS (8)
  1. SEVELAMER CARBONATE [Suspect]
     Active Substance: SEVELAMER CARBONATE
     Indication: Hyperphosphataemia
     Dosage: 1600 MG, TID
     Route: 048
     Dates: start: 20220108, end: 20220218
  2. ERYTHROPOIETIN [Concomitant]
     Active Substance: ERYTHROPOIETIN
     Dosage: UNK
     Dates: start: 20220121
  3. IRON POLYSACCHARIDE COMPLEX [Concomitant]
     Dosage: UNK
     Dates: start: 20220121
  4. LEVOCARNITINE [Concomitant]
     Active Substance: LEVOCARNITINE
     Dosage: UNK
     Dates: start: 20201007
  5. NADROPARIN CALCIUM [Concomitant]
     Active Substance: NADROPARIN CALCIUM
     Dosage: UNK
     Dates: start: 20210113
  6. AMLODIPINE BESYLATE [Concomitant]
     Active Substance: AMLODIPINE BESYLATE
     Dosage: UNK
     Dates: start: 20211110
  7. CARVEDILOL STADA ARZNEIMITTEL GMBH [Concomitant]
     Dosage: UNK
     Dates: start: 20211110
  8. CINACALCET HYDROCHLORIDE [Concomitant]
     Active Substance: CINACALCET HYDROCHLORIDE
     Dosage: UNK

REACTIONS (4)
  - Myocardial infarction [Not Recovered/Not Resolved]
  - Azotaemia [Unknown]
  - Chronic gastritis [Unknown]
  - Coronary artery disease [Not Recovered/Not Resolved]

NARRATIVE: CASE EVENT DATE: 20220219
